FAERS Safety Report 22137111 (Version 3)
Quarter: 2023Q2

REPORT INFORMATION
  Report Type: Spontaneous
  Country: GB (occurrence: GB)
  Receive Date: 20230324
  Receipt Date: 20230428
  Transmission Date: 20230721
  Serious: Yes (Life-Threatening, Hospitalization)
  Sender: FDA-Public Use
  Company Number: GB-MALLINCKRODT-MNK202300527

PATIENT
  Age: 7 Year
  Sex: Male
  Weight: 23 kg

DRUGS (3)
  1. UVADEX [Suspect]
     Active Substance: METHOXSALEN
     Indication: Acute graft versus host disease in skin
     Dosage: UNK, WEEKLY, (NO. OF ECP TREATMENTS: 2)
     Route: 050
     Dates: start: 20230306, end: 20230307
  2. UVADEX [Suspect]
     Active Substance: METHOXSALEN
     Dosage: UNK (RESUMED)
     Route: 050
     Dates: start: 202303
  3. ANTICOAGULANT CITRATE DEXTROSE SOLUTION (ACD) NOS [Concomitant]
     Active Substance: CITRIC ACID MONOHYDRATE\DEXTROSE\SODIUM CITRATE
     Dosage: UNK (A/C RATIO 14:1)

REACTIONS (4)
  - Multiple organ dysfunction syndrome [Not Recovered/Not Resolved]
  - Respiratory disorder [Recovered/Resolved]
  - Malaise [Not Recovered/Not Resolved]
  - Product use in unapproved indication [Unknown]

NARRATIVE: CASE EVENT DATE: 20230306
